FAERS Safety Report 19617241 (Version 1)
Quarter: 2021Q3

REPORT INFORMATION
  Report Type: Spontaneous
  Country: US (occurrence: US)
  Receive Date: 20210727
  Receipt Date: 20210727
  Transmission Date: 20211014
  Serious: No
  Sender: FDA-Public Use
  Company Number: US-ABBVIE-20K-163-3596156-00

PATIENT
  Age: 63 Year
  Sex: Female
  Weight: 78.09 kg

DRUGS (3)
  1. LEVOTHYROXINE. [Suspect]
     Active Substance: LEVOTHYROXINE
     Indication: AUTOIMMUNE THYROIDITIS
     Route: 048
     Dates: start: 2014, end: 2015
  2. SYNTHROID [Suspect]
     Active Substance: LEVOTHYROXINE SODIUM
     Indication: AUTOIMMUNE THYROIDITIS
     Route: 048
     Dates: start: 2015
  3. T3 [Concomitant]
     Active Substance: LIOTHYRONINE SODIUM
     Indication: AUTOIMMUNE THYROIDITIS

REACTIONS (5)
  - Post procedural infection [Recovered/Resolved]
  - Illness [Recovered/Resolved]
  - Chest pain [Recovered/Resolved]
  - Diverticulitis [Unknown]
  - Palpitations [Recovered/Resolved]

NARRATIVE: CASE EVENT DATE: 2014
